FAERS Safety Report 4751340-8 (Version None)
Quarter: 2005Q3

REPORT INFORMATION
  Report Type: 
  Country: None (occurrence: None)
  Receive Date: 20050822
  Receipt Date: 20050809
  Transmission Date: 20060218
  Serious: Yes (Hospitalization, Other)
  Sender: FDA-Public Use
  Company Number: 2005115821

PATIENT
  Sex: Female

DRUGS (2)
  1. GEODON [Suspect]
     Indication: ILL-DEFINED DISORDER
     Dosage: 180 MG (1 D)
  2. RISPERDAL [Suspect]
     Indication: ILL-DEFINED DISORDER

REACTIONS (2)
  - ELECTROCARDIOGRAM QT PROLONGED [None]
  - PALPITATIONS [None]
